FAERS Safety Report 13393480 (Version 1)
Quarter: 2017Q1

REPORT INFORMATION
  Report Type: Spontaneous
  Country: US (occurrence: US)
  Receive Date: 20170331
  Receipt Date: 20170331
  Transmission Date: 20170429
  Serious: Yes (Death, Hospitalization, Other)
  Sender: FDA-Public Use
  Company Number: US-B.I. PHARMACEUTICALS,INC./RIDGEFIELD-2017-BI-018288

PATIENT
  Sex: Male

DRUGS (3)
  1. ADVAIR HFA [Concomitant]
     Active Substance: FLUTICASONE PROPIONATE\SALMETEROL XINAFOATE
     Indication: PRODUCT USED FOR UNKNOWN INDICATION
     Dosage: 1 PUFF TWICE A DAY;  FORM STRENGTH: 250/50MCG
     Route: 065
  2. ALBUTEROL. [Concomitant]
     Active Substance: ALBUTEROL
     Indication: PRODUCT USED FOR UNKNOWN INDICATION
     Dosage: 3-4 TIMES PER DAY;  FORM STRENGTH: .083%; FORMULATION: INHALATION AEROSOL
     Route: 055
  3. SPIRIVA [Suspect]
     Active Substance: TIOTROPIUM BROMIDE MONOHYDRATE
     Indication: ASTHMA
     Dosage: 1 CAPSULE DAILY;  FORM STRENGTH: 18 MCG; FORMULATION: CAPSULE? ADMINISTRATION CORRECT? YES ?ACTION(S
     Route: 055
     Dates: start: 2014

REACTIONS (12)
  - Bronchospasm [Recovered/Resolved]
  - Cough [Recovered/Resolved]
  - Back pain [Fatal]
  - Fall [Recovered/Resolved]
  - Wheezing [Recovered/Resolved]
  - Intervertebral disc compression [Recovered/Resolved]
  - Off label use [Not Recovered/Not Resolved]
  - Skin discolouration [Recovered/Resolved]
  - Back pain [Recovered/Resolved]
  - Fluid retention [Recovered/Resolved]
  - Idiopathic pulmonary fibrosis [Not Recovered/Not Resolved]
  - Cardiac failure congestive [Fatal]

NARRATIVE: CASE EVENT DATE: 2014
